FAERS Safety Report 8481347-9 (Version None)
Quarter: 2012Q2

REPORT INFORMATION
  Report Type: 
  Country: None (occurrence: None)
  Receive Date: 20120626
  Receipt Date: 20120626
  Transmission Date: 20120825
  Serious: Yes (Hospitalization)
  Sender: FDA-Public Use
  Company Number: None

PATIENT
  Age: 54 Year
  Sex: Male
  Weight: 136 kg

DRUGS (1)
  1. PRIMIDONE [Suspect]
     Indication: TREMOR
     Dates: start: 20111121, end: 20111209

REACTIONS (3)
  - TREMOR [None]
  - CONDITION AGGRAVATED [None]
  - DEPRESSION [None]
